FAERS Safety Report 6475929-3 (Version None)
Quarter: 2009Q4

REPORT INFORMATION
  Report Type: 
  Country: None (occurrence: None)
  Receive Date: 20091119
  Receipt Date: 20090923
  Transmission Date: 20100525
  Serious: Yes (Other)
  Sender: FDA-Public Use
  Company Number: 2009SP027094

PATIENT
  Sex: Female

DRUGS (1)
  1. IMPLANON [Suspect]
     Indication: CONTRACEPTION
     Dates: end: 20090727

REACTIONS (4)
  - BREAST MASS [None]
  - DEVICE BREAKAGE [None]
  - MOOD SWINGS [None]
  - VAGINAL HAEMORRHAGE [None]
